FAERS Safety Report 6440190-2 (Version None)
Quarter: 2009Q4

REPORT INFORMATION
  Report Type: 
  Country: None (occurrence: None)
  Receive Date: 20091113
  Receipt Date: 20090730
  Transmission Date: 20100525
  Serious: No
  Sender: FDA-Public Use
  Company Number: A0799677A

PATIENT
  Age: 74 Year
  Sex: Female

DRUGS (1)
  1. COREG [Suspect]
     Dosage: 6.25MG TWICE PER DAY
     Route: 048
     Dates: start: 20061001

REACTIONS (1)
  - DIZZINESS [None]
